FAERS Safety Report 6952773-1 (Version None)
Quarter: 2010Q3

REPORT INFORMATION
  Report Type: 
  Country: None (occurrence: None)
  Receive Date: 20100829
  Receipt Date: 20100518
  Transmission Date: 20110219
  Serious: No
  Sender: FDA-Public Use
  Company Number: US-ABBOTT-10P-163-0645644-00

PATIENT
  Sex: Female
  Weight: 83.082 kg

DRUGS (8)
  1. NIASPAN [Suspect]
     Indication: HYPERLIPIDAEMIA
     Dosage: IN THE MORNING
     Dates: start: 20080501
  2. AZOR [Concomitant]
     Indication: PRODUCT USED FOR UNKNOWN INDICATION
     Dosage: 10/40 DAILY
  3. TRILIPIX [Concomitant]
     Indication: PRODUCT USED FOR UNKNOWN INDICATION
  4. ASPIRIN [Concomitant]
     Indication: PRODUCT USED FOR UNKNOWN INDICATION
  5. SUPPLEMENT FOR FINGERNAILS [Concomitant]
     Indication: PRODUCT USED FOR UNKNOWN INDICATION
  6. PRISTIQ [Concomitant]
     Indication: ANTIDEPRESSANT THERAPY
  7. SEROQUEL [Concomitant]
     Indication: PRODUCT USED FOR UNKNOWN INDICATION
     Dates: end: 20100510
  8. KLONOPIN [Concomitant]
     Indication: PRODUCT USED FOR UNKNOWN INDICATION
     Dates: end: 20100510

REACTIONS (3)
  - BLOOD UREA INCREASED [None]
  - FLUSHING [None]
  - PRURITUS [None]
